FAERS Safety Report 4768536-1 (Version None)
Quarter: 2005Q3

REPORT INFORMATION
  Report Type: 
  Country: None (occurrence: None)
  Receive Date: 20050914
  Receipt Date: 20050103
  Transmission Date: 20060218
  Serious: Yes (Hospitalization)
  Sender: FDA-Public Use
  Company Number: US-JNJFOC-20040504066

PATIENT
  Sex: Female
  Weight: 54.43 kg

DRUGS (5)
  1. ORTHO TRI-CYCLEN [Suspect]
     Indication: DRUG USE FOR UNKNOWN INDICATION
     Route: 048
     Dates: start: 20030201, end: 20040226
  2. CLARITIN [Concomitant]
  3. PRILOSEC [Concomitant]
  4. ANTIBIOTIC [Concomitant]
  5. SINGULAIR [Concomitant]

REACTIONS (2)
  - PAIN [None]
  - PANCREATIC ENZYMES INCREASED [None]
